FAERS Safety Report 21274903 (Version 1)
Quarter: 2022Q3

REPORT INFORMATION
  Report Type: Spontaneous
  Country: US (occurrence: None)
  Receive Date: 20220831
  Receipt Date: 20220831
  Transmission Date: 20221026
  Serious: No
  Sender: FDA-Public Use
  Company Number: None

PATIENT
  Age: 32 Year
  Sex: Female
  Weight: 63 kg

DRUGS (1)
  1. HAILEY FE 1/20 [Suspect]
     Active Substance: ETHINYL ESTRADIOL\NORETHINDRONE ACETATE
     Indication: Contraception
     Dosage: OTHER QUANTITY : 28 TABLET(S);?FREQUENCY : DAILY;?
     Route: 048
     Dates: start: 20220827

REACTIONS (5)
  - Vulvovaginal pain [None]
  - Vaginal haemorrhage [None]
  - Mood altered [None]
  - Skin disorder [None]
  - Product substitution issue [None]

NARRATIVE: CASE EVENT DATE: 20220829
